FAERS Safety Report 5467338-0 (Version None)
Quarter: 2007Q3

REPORT INFORMATION
  Report Type: 
  Country: None (occurrence: None)
  Receive Date: 20070925
  Receipt Date: 20070914
  Transmission Date: 20080115
  Serious: Yes (Hospitalization, Other)
  Sender: FDA-Public Use
  Company Number: HQWYE030125OCT04

PATIENT
  Sex: Female

DRUGS (3)
  1. PREMPHASE 14/14 [Suspect]
  2. MEDROXYPROGESTERONE ACETATE [Suspect]
  3. CONJUGATED ESTROGENS [Suspect]

REACTIONS (1)
  - CONTRALATERAL BREAST CANCER [None]
